FAERS Safety Report 5098509-3 (Version None)
Quarter: 2006Q3

REPORT INFORMATION
  Report Type: 
  Country: None (occurrence: None)
  Receive Date: 20060906
  Receipt Date: 20060209
  Transmission Date: 20061208
  Serious: No
  Sender: FDA-Public Use
  Company Number: US-GLAXOSMITHKLINE-A0593045A

PATIENT
  Age: 54 Year
  Sex: Female
  Weight: 69.1 kg

DRUGS (20)
  1. REQUIP [Suspect]
     Indication: RESTLESS LEGS SYNDROME
     Route: 048
  2. PROZAC [Suspect]
     Indication: ANXIETY
     Route: 048
     Dates: start: 19980101
  3. AMBIEN [Suspect]
     Indication: INSOMNIA
     Route: 048
     Dates: start: 20060208
  4. ACCURETIC [Concomitant]
     Indication: HYPERTENSION
     Dosage: 20MG PER DAY
     Route: 048
     Dates: start: 20050209
  5. NIASPAN [Concomitant]
     Dosage: 2TAB AT NIGHT
     Route: 048
     Dates: start: 20030506
  6. LEVOXYL [Concomitant]
     Indication: HYPOTHYROIDISM
     Dosage: 75MCG PER DAY
     Route: 048
     Dates: start: 20021231
  7. FOLTX [Concomitant]
     Dosage: 2TAB TWICE PER DAY
     Route: 048
  8. PROMETRIUM [Concomitant]
     Indication: MENORRHAGIA
     Dosage: 200MG AS DIRECTED
     Route: 067
     Dates: start: 20030114
  9. ESTRACE [Concomitant]
     Indication: DYSPAREUNIA
     Dosage: 2G TWO TIMES PER WEEK
     Route: 067
     Dates: start: 20050907
  10. VITAMIN B-12 [Concomitant]
     Indication: VITAMIN B12 DEFICIENCY
  11. ZINC [Concomitant]
     Indication: DRUG USE FOR UNKNOWN INDICATION
  12. IODINE [Concomitant]
     Indication: DRUG USE FOR UNKNOWN INDICATION
  13. TYROSINE [Concomitant]
     Indication: DRUG USE FOR UNKNOWN INDICATION
  14. ASCORBIC ACID [Concomitant]
  15. PRENATAL VITAMINS [Concomitant]
  16. FLAX SEED [Concomitant]
  17. SELENIUM SULFIDE [Concomitant]
  18. IRON [Concomitant]
  19. MANGANESE [Concomitant]
  20. COD LIVER OIL [Concomitant]

REACTIONS (4)
  - AKATHISIA [None]
  - FEELING ABNORMAL [None]
  - MOBILITY DECREASED [None]
  - PANIC ATTACK [None]
